FAERS Safety Report 13184916 (Version 2)
Quarter: 2017Q2

REPORT INFORMATION
  Report Type: Spontaneous
  Country: CA (occurrence: CA)
  Receive Date: 20170203
  Receipt Date: 20170411
  Transmission Date: 20170830
  Serious: Yes (Other)
  Sender: FDA-Public Use
  Company Number: CA-BAYER-2017-017011

PATIENT
  Age: 45 Year
  Sex: Female

DRUGS (2)
  1. CIPRO [Suspect]
     Active Substance: CIPROFLOXACIN HYDROCHLORIDE
     Indication: URINARY TRACT INFECTION
     Dosage: UNK
     Dates: start: 20151227
  2. CIPRO [Suspect]
     Active Substance: CIPROFLOXACIN HYDROCHLORIDE
     Indication: URINARY TRACT INFECTION
     Dosage: UNK
     Dates: start: 2007

REACTIONS (8)
  - Back pain [None]
  - Nervous system disorder [None]
  - Hypoaesthesia [None]
  - Musculoskeletal stiffness [None]
  - Gait disturbance [None]
  - Hypoaesthesia [None]
  - Multiple sclerosis [None]
  - Back pain [None]

NARRATIVE: CASE EVENT DATE: 2007
